FAERS Safety Report 22333416 (Version 1)
Quarter: 2023Q2

REPORT INFORMATION
  Report Type: Spontaneous
  Country: CN (occurrence: CN)
  Receive Date: 20230517
  Receipt Date: 20230517
  Transmission Date: 20230722
  Serious: Yes (Life-Threatening, Hospitalization)
  Sender: FDA-Public Use
  Company Number: CN-BAYER-2023A063556

PATIENT

DRUGS (1)
  1. STIVARGA [Suspect]
     Active Substance: REGORAFENIB
     Indication: Hepatic neoplasm
     Dosage: UNK
     Route: 048
     Dates: start: 20230421

REACTIONS (5)
  - Cardiovascular disorder [None]
  - Dizziness [None]
  - Hypoaesthesia [None]
  - Chest discomfort [None]
  - Loss of consciousness [None]

NARRATIVE: CASE EVENT DATE: 20230504
